FAERS Safety Report 9334233 (Version 1)
Quarter: 2013Q2

REPORT INFORMATION
  Report Type: Spontaneous
  Country: US (occurrence: US)
  Receive Date: 20130606
  Receipt Date: 20130606
  Transmission Date: 20140414
  Serious: No
  Sender: FDA-Public Use
  Company Number: US-AMGEN-USASP2013009307

PATIENT
  Age: 71 Year
  Sex: Female
  Weight: 66.21 kg

DRUGS (8)
  1. PLAVIX [Concomitant]
     Dosage: 75 MG, QD
  2. LIPITOR [Concomitant]
     Dosage: 10 MG, QD
  3. ACCUPRIL [Concomitant]
     Dosage: 20 MG, QD
  4. NORVASC [Concomitant]
     Dosage: 5 MG, QD
  5. PRILOSEC                           /00661201/ [Concomitant]
     Dosage: 20 MG, QD
  6. MECLIZINE                          /00072801/ [Concomitant]
     Dosage: 25 MG, UNK
  7. VALIUM                             /00017001/ [Concomitant]
     Dosage: 5 MG, UNK
  8. PROLIA [Suspect]
     Indication: PRODUCT USED FOR UNKNOWN INDICATION
     Dosage: 60 MG, Q6MO
     Route: 058
     Dates: start: 20120621, end: 20130212

REACTIONS (7)
  - Pigmentation disorder [Unknown]
  - Lichen planus [Unknown]
  - Skin swelling [Unknown]
  - Macule [Unknown]
  - Goitre [Unknown]
  - Rash pruritic [Unknown]
  - Eczema [Unknown]
